FAERS Safety Report 6184723-2 (Version None)
Quarter: 2009Q2

REPORT INFORMATION
  Report Type: 
  Country: None (occurrence: None)
  Receive Date: 20090508
  Receipt Date: 20090427
  Transmission Date: 20091009
  Serious: Yes (Hospitalization)
  Sender: FDA-Public Use
  Company Number: FR-GENENTECH-282267

PATIENT
  Age: 36 Year
  Sex: Female

DRUGS (4)
  1. HERCEPTIN [Suspect]
     Indication: BREAST CANCER
     Dosage: UNK
     Route: 065
     Dates: start: 20090401
  2. TAXOTERE [Suspect]
     Indication: BREAST CANCER
     Dosage: UNK
     Route: 065
     Dates: start: 20090401
  3. ONDANSETRON HCL [Concomitant]
     Indication: PREMEDICATION
     Dosage: UNK
     Dates: start: 20090401
  4. SOLU-MEDROL [Concomitant]
     Indication: PREMEDICATION
     Dosage: UNK
     Dates: start: 20090401

REACTIONS (2)
  - PETECHIAE [None]
  - THROMBOCYTOPENIA [None]
